FAERS Safety Report 18403556 (Version 1)
Quarter: 2020Q4

REPORT INFORMATION
  Report Type: Spontaneous
  Country: US (occurrence: US)
  Receive Date: 20201019
  Receipt Date: 20201019
  Transmission Date: 20210114
  Serious: Yes (Life-Threatening, Hospitalization, Disabling)
  Sender: FDA-Public Use
  Company Number: None

PATIENT
  Age: 62 Year
  Sex: Male
  Weight: 106.2 kg

DRUGS (23)
  1. METOPROLOL SUCCINATE. [Concomitant]
     Active Substance: METOPROLOL SUCCINATE
  2. CHOLECALCIFEROL [Concomitant]
     Active Substance: CHOLECALCIFEROL
  3. CLOPIDOGREL [Concomitant]
     Active Substance: CLOPIDOGREL BISULFATE
  4. OMEPRAZOLE. [Concomitant]
     Active Substance: OMEPRAZOLE
  5. BENADRYL [Concomitant]
     Active Substance: DIPHENHYDRAMINE HYDROCHLORIDE
  6. MELATONIN [Concomitant]
     Active Substance: MELATONIN
  7. LEMBOREXANT [Concomitant]
     Active Substance: LEMBOREXANT
  8. APIXABAN [Concomitant]
     Active Substance: APIXABAN
  9. SERTRALINE [Concomitant]
     Active Substance: SERTRALINE HYDROCHLORIDE
  10. MAG-OXIDE [Concomitant]
     Active Substance: MAGNESIUM OXIDE
  11. ENTRESTO [Concomitant]
     Active Substance: SACUBITRIL\VALSARTAN
  12. DIGOXIN. [Concomitant]
     Active Substance: DIGOXIN
  13. AMIODARONE COMMON BRAND NAMES: PACERONE, CORDARONE [Suspect]
     Active Substance: AMIODARONE
     Indication: CARDIAC DISORDER
     Dosage: ?          QUANTITY:1 TABLET(S);?
     Route: 048
     Dates: start: 20171127
  14. AMIODARONE [Concomitant]
     Active Substance: AMIODARONE
  15. SIMETHICONE (DIMETHICONE) [Concomitant]
     Active Substance: DIMETHICONE
  16. GUNDRY^S VITAL REDS [Concomitant]
  17. IRON [Concomitant]
     Active Substance: IRON
  18. SPIRONOLACTONE. [Concomitant]
     Active Substance: SPIRONOLACTONE
  19. FUROSEMIDE. [Concomitant]
     Active Substance: FUROSEMIDE
  20. RANITIDINE. [Concomitant]
     Active Substance: RANITIDINE
  21. ATORVASTATIN [Concomitant]
     Active Substance: ATORVASTATIN
  22. LEVOTHYROXINE. [Concomitant]
     Active Substance: LEVOTHYROXINE
  23. CALCIUM [Concomitant]
     Active Substance: CALCIUM

REACTIONS (12)
  - Vascular procedure complication [None]
  - Condition aggravated [None]
  - Post procedural complication [None]
  - Cardiac procedure complication [None]
  - Hyperthyroidism [None]
  - Arteriosclerosis [None]
  - Angina unstable [None]
  - Cholelithiasis [None]
  - Product communication issue [None]
  - Mitral valve incompetence [None]
  - Coronary artery bypass [None]
  - Arterial occlusive disease [None]

NARRATIVE: CASE EVENT DATE: 20171127
